FAERS Safety Report 7630394-5 (Version None)
Quarter: 2011Q3

REPORT INFORMATION
  Report Type: 
  Country: None (occurrence: None)
  Receive Date: 20110722
  Receipt Date: 20110718
  Transmission Date: 20111222
  Serious: Yes (Death)
  Sender: FDA-Public Use
  Company Number: US-GLAXOSMITHKLINE-A0937071A

PATIENT
  Age: 57 Year
  Sex: Female

DRUGS (3)
  1. UNKNOWN [Concomitant]
     Route: 048
  2. TYKERB [Suspect]
     Indication: BREAST CANCER
     Route: 048
     Dates: start: 20110201, end: 20110321
  3. COUMADIN [Concomitant]

REACTIONS (2)
  - CONDITION AGGRAVATED [None]
  - BREAST CANCER METASTATIC [None]
